FAERS Safety Report 7347213-7 (Version None)
Quarter: 2011Q1

REPORT INFORMATION
  Report Type: 
  Country: None (occurrence: None)
  Receive Date: 20110311
  Receipt Date: 20110304
  Transmission Date: 20110831
  Serious: Yes (Hospitalization)
  Sender: FDA-Public Use
  Company Number: DE-PFIZER INC-2011047590

PATIENT
  Age: 66 Year
  Sex: Male
  Weight: 87.5 kg

DRUGS (11)
  1. PRAVASTATIN [Concomitant]
     Dosage: 20 MG, 1X/DAY
     Dates: start: 20100504
  2. ZOCOR [Concomitant]
     Dosage: UNK
     Dates: start: 20090212
  3. ZOCOR [Concomitant]
     Dosage: 10 MG, 1X/DAY
     Dates: start: 20051031
  4. SOMATROPIN [Suspect]
     Indication: GROWTH HORMONE DEFICIENCY
     Dosage: 0.2 MG, 4 INJECTIONS/WEEK
     Dates: start: 20040927, end: 20110202
  5. IDEOS [Concomitant]
     Dosage: UNK
     Dates: start: 20090212
  6. IDEOS [Concomitant]
     Dosage: 500 MG, UNK
     Dates: start: 20070403
  7. HYDROCORTISONE [Concomitant]
     Dosage: 15 MG, 1X/DAY
     Dates: start: 20040415
  8. TESTOSTERONE [Concomitant]
     Dosage: 50 MG, DAILY
     Dates: start: 20090212
  9. LISINOPRIL [Concomitant]
     Dosage: 10 MG, 1X/DAY
     Dates: start: 20050411
  10. AMLODIPINE [Concomitant]
     Dosage: 5 MG, 2X/DAY
     Dates: start: 20050411
  11. LEVOTHYROXINE [Concomitant]
     Dosage: 62.5 UG, 1X/DAY
     Dates: start: 20040415

REACTIONS (2)
  - PITUITARY TUMOUR BENIGN [None]
  - CONDITION AGGRAVATED [None]
